FAERS Safety Report 23414947 (Version 1)
Quarter: 2024Q1

REPORT INFORMATION
  Report Type: Report from Study
  Country: CZ (occurrence: CZ)
  Receive Date: 20240118
  Receipt Date: 20240118
  Transmission Date: 20240409
  Serious: Yes (Hospitalization)
  Sender: FDA-Public Use
  Company Number: CZ-SAMSUNG BIOEPIS-SB-2024-00681

PATIENT
  Age: 50 Year
  Sex: Male

DRUGS (1)
  1. ETANERCEPT [Suspect]
     Active Substance: ETANERCEPT
     Indication: Product used for unknown indication
     Route: 065

REACTIONS (3)
  - Hip arthroplasty [Recovering/Resolving]
  - Post procedural fistula [Recovering/Resolving]
  - Infected fistula [Recovering/Resolving]

NARRATIVE: CASE EVENT DATE: 20230810
